FAERS Safety Report 7879952-3 (Version None)
Quarter: 2011Q4

REPORT INFORMATION
  Report Type: 
  Country: None (occurrence: None)
  Receive Date: 20111101
  Receipt Date: 20111025
  Transmission Date: 20120403
  Serious: Yes (Disabling, Other)
  Sender: FDA-Public Use
  Company Number: US-TEVA-291061USA

PATIENT
  Sex: Female

DRUGS (16)
  1. POTASSIUM CHLORIDE [Concomitant]
     Dosage: 20 MILLIEQUIVALENTS;
  2. HYZAAR [Concomitant]
     Dosage: 25MG-100MG
  3. JANUVIA [Concomitant]
     Dosage: 100 MILLIGRAM;
  4. METFORMIN HCL [Concomitant]
     Dosage: 500 MILLIGRAM;
  5. FUROSEMIDE [Concomitant]
     Dosage: 40 MILLIGRAM;
  6. LEVOTHYROXINE SODIUM [Concomitant]
     Dosage: 100 MICROGRAM;
  7. AMLODIPINE [Concomitant]
     Dosage: 10 MILLIGRAM;
  8. ERGOCALCIFEROL [Concomitant]
     Dosage: 50,000 IU
  9. CLONIDINE [Suspect]
     Dosage: .0286 MILLIGRAM;
     Route: 062
     Dates: end: 20110707
  10. OMEPRAZOLE [Concomitant]
  11. CLOPIDOGREL [Concomitant]
     Dosage: 75 MILLIGRAM;
  12. GABAPENTIN [Concomitant]
     Dosage: 50 MILLIGRAM;
  13. CARVEDILOL [Concomitant]
     Dosage: 50 MILLIGRAM;
  14. INSULIN [Concomitant]
     Dosage: 35 UNITS, TID PER SLIDING SCALE
  15. INSULIN GLARGINE [Concomitant]
     Dosage: 55 UNITS HS
  16. SIMVASTATIN [Concomitant]
     Dosage: 40 MILLIGRAM; HS

REACTIONS (9)
  - DEFORMITY [None]
  - RASH [None]
  - INJURY [None]
  - BREAST INFLAMMATION [None]
  - SWELLING [None]
  - MASTITIS [None]
  - APPLICATION SITE BURN [None]
  - PAIN [None]
  - APPLICATION SITE SCAR [None]
